FAERS Safety Report 12240740 (Version 6)
Quarter: 2017Q2

REPORT INFORMATION
  Report Type: Report from Study
  Country: DE (occurrence: DE)
  Receive Date: 20160406
  Receipt Date: 20170612
  Transmission Date: 20170830
  Serious: Yes (Hospitalization)
  Sender: FDA-Public Use
  Company Number: DE-ROCHE-1731349

PATIENT
  Age: 70 Year
  Sex: Male
  Weight: 59 kg

DRUGS (35)
  1. CLARITHROMYCIN. [Concomitant]
     Active Substance: CLARITHROMYCIN
     Indication: GASTRITIS
     Route: 065
     Dates: start: 20160324, end: 20160402
  2. TAVEGIL [Concomitant]
     Active Substance: CLEMASTINE FUMARATE
     Indication: INFUSION RELATED REACTION
     Route: 065
     Dates: start: 20160412, end: 20160412
  3. UNACID [Concomitant]
     Active Substance: AMPICILLIN SODIUM\SULBACTAM SODIUM
     Indication: C-REACTIVE PROTEIN INCREASED
     Route: 065
     Dates: start: 20160413, end: 20160426
  4. METFORMIN [Concomitant]
     Active Substance: METFORMIN HYDROCHLORIDE
     Route: 065
     Dates: start: 20160330
  5. INSULIN [Concomitant]
     Active Substance: INSULIN NOS
     Route: 065
     Dates: start: 201603
  6. CLEMASTIN [Concomitant]
     Active Substance: CLEMASTINE
     Indication: PROPHYLAXIS
     Route: 065
     Dates: start: 20160225, end: 20160225
  7. CLEMASTIN [Concomitant]
     Active Substance: CLEMASTINE
     Route: 065
     Dates: start: 20160412, end: 20160412
  8. OXYCODON [Concomitant]
     Active Substance: OXYCODONE
     Indication: GENERAL PHYSICAL HEALTH DETERIORATION
  9. SALINE [Concomitant]
     Active Substance: SODIUM CHLORIDE
     Indication: PROPHYLAXIS
     Route: 065
     Dates: start: 20160322, end: 20160322
  10. CARBOPLATIN. [Suspect]
     Active Substance: CARBOPLATIN
     Indication: NON-SMALL CELL LUNG CANCER STAGE IV
     Dosage: TARGET AUC = 6 MG/ML/MIN?MOST RECENT DOSE (608 MG) ADMINISTERED ON 25/FEB/2016, PRIOR TO THE EVENT
     Route: 042
     Dates: start: 20160225
  11. ONDANSETRON [Concomitant]
     Active Substance: ONDANSETRON
     Route: 065
     Dates: start: 20160412, end: 20160412
  12. ATROVENT [Concomitant]
     Active Substance: IPRATROPIUM BROMIDE
     Indication: PNEUMONIA
     Route: 065
     Dates: start: 20160322, end: 20160323
  13. PREGABALIN. [Concomitant]
     Active Substance: PREGABALIN
     Indication: GENERAL PHYSICAL HEALTH DETERIORATION
  14. MORPHIN [Concomitant]
     Active Substance: MORPHINE
     Indication: GENERAL PHYSICAL HEALTH DETERIORATION
  15. BEVACIZUMAB [Suspect]
     Active Substance: BEVACIZUMAB
     Indication: NON-SMALL CELL LUNG CANCER STAGE IV
     Dosage: MOST RECENT DOSE (930 MG) ADMINISTERED ON 25/FEB/2016, PRIOR TO THE EVENT
     Route: 042
     Dates: start: 20160225
  16. PACKED ERYTHROCYTES TRANSFUSION [Concomitant]
     Indication: ANAEMIA
     Route: 065
     Dates: start: 20160314, end: 20160321
  17. RINGER SOLUTION [Concomitant]
     Indication: DEHYDRATION
     Route: 065
     Dates: start: 20160323, end: 20160324
  18. RANITIDIN [Concomitant]
     Active Substance: RANITIDINE HYDROCHLORIDE
     Indication: PROPHYLAXIS
     Route: 065
     Dates: start: 20160225, end: 20160225
  19. ONDANSETRON [Concomitant]
     Active Substance: ONDANSETRON
     Route: 065
     Dates: start: 20160504, end: 20160504
  20. METAMIZOL [Concomitant]
     Active Substance: METAMIZOLE SODIUM
     Indication: GENERAL PHYSICAL HEALTH DETERIORATION
  21. RANITIDIN [Concomitant]
     Active Substance: RANITIDINE HYDROCHLORIDE
     Indication: INFUSION RELATED REACTION
     Route: 065
     Dates: start: 20160412, end: 20160412
  22. RANITIDIN [Concomitant]
     Active Substance: RANITIDINE HYDROCHLORIDE
     Route: 065
     Dates: start: 20160504, end: 20160504
  23. ONDANSETRON [Concomitant]
     Active Substance: ONDANSETRON
     Indication: PROPHYLAXIS OF NAUSEA AND VOMITING
     Route: 065
     Dates: start: 20160225, end: 20160225
  24. PACKED ERYTHROCYTES TRANSFUSION [Concomitant]
     Indication: ANAEMIA
     Route: 065
     Dates: start: 20160324, end: 20160324
  25. RINGER SOLUTION [Concomitant]
     Indication: DEHYDRATION
     Route: 065
     Dates: start: 20160511, end: 20160513
  26. CLEMASTIN [Concomitant]
     Active Substance: CLEMASTINE
     Route: 065
     Dates: start: 20160504, end: 20160504
  27. SULTANOL [Concomitant]
     Active Substance: ALBUTEROL SULFATE
     Indication: DYSPNOEA
     Route: 065
     Dates: start: 20160321, end: 20160324
  28. METRONIDAZOL [Concomitant]
     Active Substance: METRONIDAZOLE
     Indication: GASTRITIS
     Route: 065
     Dates: start: 20160324, end: 20160402
  29. ATEZOLIZUMAB [Suspect]
     Active Substance: ATEZOLIZUMAB
     Indication: NON-SMALL CELL LUNG CANCER STAGE IV
     Dosage: MOST RECENT DOSE ADMINISTERED ON 25/FEB/2016, PRIOR TO THE EVENT
     Route: 042
     Dates: start: 20160225
  30. PACLITAXEL. [Suspect]
     Active Substance: PACLITAXEL
     Indication: NON-SMALL CELL LUNG CANCER STAGE IV
     Dosage: MOST RECENT DOSE (338 MG) ADMINISTERED ON 25/FEB/2016, PRIOR TO THE EVENT
     Route: 042
     Dates: start: 20160225
  31. METFORMIN [Concomitant]
     Active Substance: METFORMIN HYDROCHLORIDE
     Indication: TYPE 2 DIABETES MELLITUS
     Route: 065
     Dates: start: 20160226, end: 20160301
  32. INSULIN [Concomitant]
     Active Substance: INSULIN NOS
     Indication: HYPERGLYCAEMIA
     Route: 065
     Dates: start: 20160227, end: 20160227
  33. ZOPICLON [Concomitant]
     Active Substance: ZOPICLONE
     Indication: INSOMNIA
     Route: 065
     Dates: start: 20160225
  34. AMOXCLAV [Concomitant]
     Indication: C-REACTIVE PROTEIN INCREASED
     Route: 065
     Dates: start: 20160314, end: 20160321
  35. PACKED ERYTHROCYTES TRANSFUSION [Concomitant]
     Route: 065
     Dates: start: 20160606, end: 20160606

REACTIONS (1)
  - Duodenal ulcer [Recovering/Resolving]

NARRATIVE: CASE EVENT DATE: 20160322
